FAERS Safety Report 16403134 (Version 1)
Quarter: 2019Q2

REPORT INFORMATION
  Report Type: Report from Study
  Country: BR (occurrence: BR)
  Receive Date: 20190607
  Receipt Date: 20190607
  Transmission Date: 20190711
  Serious: Yes (Other)
  Sender: FDA-Public Use
  Company Number: PHHY2019BR128319

PATIENT
  Sex: Male

DRUGS (1)
  1. VOTRIENT [Suspect]
     Active Substance: PAZOPANIB HYDROCHLORIDE
     Indication: RENAL CANCER
     Dosage: UNK UNK, QD
     Route: 065
     Dates: start: 20181217

REACTIONS (4)
  - Second primary malignancy [Unknown]
  - Cancer pain [Unknown]
  - Metastasis [Unknown]
  - Bone cancer [Unknown]

NARRATIVE: CASE EVENT DATE: 2018
